FAERS Safety Report 20056665 (Version 4)
Quarter: 2022Q2

REPORT INFORMATION
  Report Type: Report from Study
  Country: US (occurrence: US)
  Receive Date: 20211111
  Receipt Date: 20220419
  Transmission Date: 20220721
  Serious: No
  Sender: FDA-Public Use
  Company Number: US-NOVARTISTESTPH-NVSC2021US252812

PATIENT
  Sex: Female

DRUGS (1)
  1. COSENTYX [Suspect]
     Active Substance: SECUKINUMAB
     Indication: Psoriatic arthropathy
     Dosage: 150 MG, QMO (DIRECTLY ONTO SKIN)
     Route: 062

REACTIONS (8)
  - Contusion [Unknown]
  - Arthralgia [Unknown]
  - Pain in extremity [Unknown]
  - Device issue [Unknown]
  - Product distribution issue [Unknown]
  - Device defective [Unknown]
  - Incorrect route of product administration [Unknown]
  - Drug ineffective [Unknown]
